FAERS Safety Report 10203693 (Version 3)
Quarter: 2014Q2

REPORT INFORMATION
  Report Type: Spontaneous
  Country: US (occurrence: US)
  Receive Date: 20140529
  Receipt Date: 20140619
  Transmission Date: 20141212
  Serious: Yes (Other)
  Sender: FDA-Public Use
  Company Number: US-ROCHE-1408972

PATIENT
  Age: 68 Year
  Sex: Female
  Weight: 81.72 kg

DRUGS (21)
  1. XOLAIR [Suspect]
     Indication: ASTHMA
     Route: 058
     Dates: start: 20110718
  2. XOLAIR [Suspect]
     Route: 058
     Dates: start: 20140310
  3. XOLAIR [Suspect]
     Route: 058
     Dates: start: 20140410
  4. XOLAIR [Suspect]
     Route: 058
     Dates: start: 20140514
  5. BENICAR [Concomitant]
     Route: 065
  6. NEXIUM [Concomitant]
     Route: 065
  7. ALTACE [Concomitant]
     Route: 065
  8. ASPIRIN [Concomitant]
     Route: 048
  9. EPIPEN [Concomitant]
     Dosage: 0.3 MG/03. ML
     Route: 030
  10. SINGULAR [Concomitant]
     Route: 065
  11. LASIX [Concomitant]
     Route: 065
  12. SPIRIVA HANDIHALER [Concomitant]
     Route: 065
  13. LIPITOR [Concomitant]
     Route: 048
  14. PROAIR (UNITED STATES) [Concomitant]
     Dosage: 2 PUFF EVERY 6 HOURS AS NEEDED.
     Route: 065
  15. XOPENEX [Concomitant]
     Dosage: 0.63 MG/3 ML NEBULIZER SOLUTION
     Route: 065
  16. CALCIUM CARBONATE [Concomitant]
     Route: 065
  17. BROVANA [Concomitant]
     Dosage: 15 MCG/2 ML NEBULIZER SOLUTION
     Route: 065
  18. PULMICORT [Concomitant]
     Dosage: 1 MG/ 2 ML NEBULIZER SOLUTION
     Route: 065
  19. DIOVAN [Concomitant]
     Route: 065
  20. BACTROBAN NASAL OINTMENT [Concomitant]
     Route: 065
     Dates: start: 20140401
  21. REQUIP [Concomitant]
     Dosage: AT BED TIME.
     Route: 048
     Dates: start: 20140310

REACTIONS (7)
  - Rash macular [Not Recovered/Not Resolved]
  - Wheezing [Unknown]
  - Cough [Unknown]
  - Blood immunoglobulin E increased [Unknown]
  - Acute sinusitis [Unknown]
  - Restless legs syndrome [Unknown]
  - Bronchial hyperreactivity [Unknown]
